FAERS Safety Report 23304713 (Version 1)
Quarter: 2023Q4

REPORT INFORMATION
  Report Type: Spontaneous
  Country: KR (occurrence: KR)
  Receive Date: 20231218
  Receipt Date: 20231218
  Transmission Date: 20240109
  Serious: Yes (Other)
  Sender: FDA-Public Use
  Company Number: KR-Accord-396631

PATIENT
  Age: 56 Year
  Sex: Female

DRUGS (4)
  1. CARBOPLATIN [Suspect]
     Active Substance: CARBOPLATIN
     Indication: Endometrial cancer stage I
     Dosage: 6 CYCLE
     Dates: start: 20200626, end: 20201020
  2. PACLITAXEL [Suspect]
     Active Substance: PACLITAXEL
     Indication: Endometrial cancer stage I
     Dosage: 6 CYCLE
     Dates: start: 20200626, end: 20201020
  3. PACLITAXEL [Suspect]
     Active Substance: PACLITAXEL
     Indication: Ovarian cancer stage III
     Dosage: 6 CYCLICAL
     Dates: start: 20200626, end: 20201020
  4. CARBOPLATIN [Suspect]
     Active Substance: CARBOPLATIN
     Indication: Ovarian cancer stage III
     Dosage: 6 CYCLICAL
     Dates: start: 20200626, end: 20201020

REACTIONS (1)
  - Pneumonia cryptococcal [Recovered/Resolved]

NARRATIVE: CASE EVENT DATE: 20220101
